FAERS Safety Report 8968758 (Version 1)
Quarter: 2012Q4

REPORT INFORMATION
  Report Type: 
  Country: US (occurrence: US)
  Receive Date: 20121218
  Receipt Date: 20121218
  Transmission Date: 20130627
  Serious: No
  Sender: FDA-Public Use
  Company Number: US-BRISTOL-MYERS SQUIBB COMPANY-16727349

PATIENT
  Age: 49 Year
  Sex: Female
  Weight: 85.26 kg

DRUGS (2)
  1. ABILIFY [Suspect]
     Indication: DEPRESSION
     Dosage: started at a dose of 2.5 mg; dose at the time of report: 5mg
  2. VENLAFAXINE HYDROCHLORIDE [Suspect]
     Indication: DEPRESSION

REACTIONS (4)
  - Nausea [Not Recovered/Not Resolved]
  - Diarrhoea [Unknown]
  - Vomiting [Not Recovered/Not Resolved]
  - Anxiety [Not Recovered/Not Resolved]
